FAERS Safety Report 7135286-6 (Version None)
Quarter: 2010Q4

REPORT INFORMATION
  Report Type: 
  Country: None (occurrence: None)
  Receive Date: 20101203
  Receipt Date: 20101129
  Transmission Date: 20110411
  Serious: Yes (Death)
  Sender: FDA-Public Use
  Company Number: A0897390A

PATIENT
  Sex: Male

DRUGS (2)
  1. PROMACTA [Suspect]
     Indication: MYELOPROLIFERATIVE DISORDER
  2. CORTICOSTEROIDS [Concomitant]

REACTIONS (1)
  - DEATH [None]
